FAERS Safety Report 18817482 (Version 1)
Quarter: 2021Q1

REPORT INFORMATION
  Report Type: Spontaneous
  Country: CA (occurrence: CA)
  Receive Date: 20210201
  Receipt Date: 20210201
  Transmission Date: 20210419
  Serious: Yes (Death, Life-Threatening, Hospitalization)
  Sender: FDA-Public Use
  Company Number: CA-ASTRAZENECA-2021A020455

PATIENT
  Age: 67 Year
  Sex: Male

DRUGS (1)
  1. ACALABRUTINIB. [Suspect]
     Active Substance: ACALABRUTINIB
     Indication: CHRONIC LYMPHOCYTIC LEUKAEMIA
     Route: 048
     Dates: start: 202009

REACTIONS (3)
  - Left ventricular hypertrophy [Unknown]
  - Aspergillus infection [Fatal]
  - Chest pain [Unknown]

NARRATIVE: CASE EVENT DATE: 202010
